FAERS Safety Report 14890127 (Version 1)
Quarter: 2018Q2

REPORT INFORMATION
  Report Type: Spontaneous
  Country: US (occurrence: US)
  Receive Date: 20180426
  Receipt Date: 20180426
  Transmission Date: 20180711
  Serious: Yes (Other)
  Sender: FDA-Public Use
  Company Number: None

PATIENT
  Age: 70 Year
  Sex: Female
  Weight: 67.5 kg

DRUGS (1)
  1. AMOXICILLIN-POT CLAVULANATE ORAL TABLET - AUGMENTIN [Suspect]
     Active Substance: AMOXICILLIN\CLAVULANATE POTASSIUM
     Indication: SINUSITIS
     Dosage: ?          QUANTITY:20 TABLET(S);?
     Route: 048
     Dates: start: 20180409, end: 20180419

REACTIONS (6)
  - Vomiting [None]
  - Chromaturia [None]
  - Pruritus [None]
  - Fatigue [None]
  - Nausea [None]
  - Hepatotoxicity [None]

NARRATIVE: CASE EVENT DATE: 20180422
